FAERS Safety Report 25416904 (Version 3)
Quarter: 2025Q2

REPORT INFORMATION
  Report Type: Spontaneous
  Country: AT (occurrence: AT)
  Receive Date: 20250610
  Receipt Date: 20250618
  Transmission Date: 20250717
  Serious: Yes (Life-Threatening, Hospitalization, Other)
  Sender: SANDOZ
  Company Number: AT-CELLTRION INC.-2025AT017214

PATIENT
  Age: 58 Year
  Sex: Female
  Weight: 52.9 kg

DRUGS (34)
  1. CYCLOPHOSPHAMIDE [Suspect]
     Active Substance: CYCLOPHOSPHAMIDE
     Indication: Diffuse large B-cell lymphoma
     Dosage: 750 MILLIGRAM/SQ. METER EVERY 3 WEEKS
     Route: 042
     Dates: start: 20220603
  2. CYCLOPHOSPHAMIDE [Suspect]
     Active Substance: CYCLOPHOSPHAMIDE
     Dosage: 750 MILLIGRAM/SQ. METER EVERY 3 WEEKS
     Route: 042
     Dates: start: 20220809
  3. DOXORUBICIN HYDROCHLORIDE [Suspect]
     Active Substance: DOXORUBICIN HYDROCHLORIDE
     Indication: Diffuse large B-cell lymphoma
     Dosage: 50 MILLIGRAM/SQ. METER EVERY 2 WEEKS
     Route: 042
     Dates: start: 20220603
  4. DOXORUBICIN HYDROCHLORIDE [Suspect]
     Active Substance: DOXORUBICIN HYDROCHLORIDE
     Dosage: 50 MILLIGRAM/SQ. METER EVERY 2 WEEKS
     Route: 042
     Dates: start: 20220809
  5. LENALIDOMIDE [Suspect]
     Active Substance: LENALIDOMIDE
     Route: 048
     Dates: start: 20220831
  6. LENALIDOMIDE [Suspect]
     Active Substance: LENALIDOMIDE
     Indication: Diffuse large B-cell lymphoma
     Route: 048
     Dates: start: 20220603, end: 20220817
  7. PREDNISOLONE [Suspect]
     Active Substance: PREDNISOLONE
     Indication: Diffuse large B-cell lymphoma
     Dosage: 100 MILLIGRAM EVERY 3 WEEKS
     Route: 042
     Dates: start: 20220603
  8. PREDNISOLONE [Suspect]
     Active Substance: PREDNISOLONE
     Dosage: 100 MILLIGRAM EVERY 3 WEEKS
     Route: 042
     Dates: start: 20220809
  9. RITUXIMAB [Suspect]
     Active Substance: RITUXIMAB
     Indication: Diffuse large B-cell lymphoma
     Dosage: 375 MILLIGRAM/SQ. METER EVERY 3 WEEKS
     Route: 042
     Dates: start: 20220603
  10. RITUXIMAB [Suspect]
     Active Substance: RITUXIMAB
     Dosage: 375 MILLIGRAM/SQ. METER EVERY 3 WEEKS
     Route: 042
     Dates: start: 20220809
  11. TAFASITAMAB [Suspect]
     Active Substance: TAFASITAMAB
     Indication: Diffuse large B-cell lymphoma
     Dosage: 12 MILLIGRAM/KILOGRAM IV EVERY WEEK
     Route: 042
     Dates: start: 20220603, end: 20220817
  12. TAFASITAMAB [Suspect]
     Active Substance: TAFASITAMAB
     Dosage: 12 MILLIGRAM/KILOGRAM IV EVERY WEEK
     Route: 042
     Dates: start: 20220809
  13. TAFASITAMAB [Suspect]
     Active Substance: TAFASITAMAB
     Dosage: 12 MILLIGRAM/KILOGRAM IV EVERY WEEK
     Route: 042
     Dates: start: 20220824
  14. VINCRISTINE [Suspect]
     Active Substance: VINCRISTINE
     Indication: Diffuse large B-cell lymphoma
     Dosage: 1.3 MILLIGRAM/SQ. METER EVERY 3 WEEKS
     Route: 042
     Dates: start: 20220603
  15. VINCRISTINE [Suspect]
     Active Substance: VINCRISTINE
     Dosage: 1.3 MILLIGRAM/SQ. METER EVERY 3 WEEKS
     Route: 042
     Dates: start: 20220809
  16. Akynzeo [Concomitant]
     Indication: Product used for unknown indication
     Route: 065
     Dates: start: 20220601
  17. ERYTHROPOIETIN [Concomitant]
     Active Substance: ERYTHROPOIETIN
     Indication: Product used for unknown indication
     Route: 065
     Dates: start: 20220707
  18. BISOPROLOL FUMARATE [Concomitant]
     Active Substance: BISOPROLOL FUMARATE
     Indication: Product used for unknown indication
     Route: 065
     Dates: start: 20220606
  19. Glandomed [Concomitant]
     Indication: Product used for unknown indication
     Route: 065
     Dates: start: 20220610
  20. IMODIUM [Concomitant]
     Active Substance: LOPERAMIDE HYDROCHLORIDE
     Indication: Product used for unknown indication
     Route: 065
     Dates: start: 20220530
  21. Laxogol [Concomitant]
     Indication: Product used for unknown indication
     Route: 065
     Dates: start: 20220607
  22. Lidaprim [Concomitant]
     Indication: Product used for unknown indication
     Route: 065
     Dates: start: 20220601
  23. MAGNESIUM [Concomitant]
     Active Substance: MAGNESIUM
     Indication: Product used for unknown indication
     Route: 065
     Dates: start: 20220726
  24. ONDANSETRON HYDROCHLORIDE [Concomitant]
     Active Substance: ONDANSETRON HYDROCHLORIDE
     Indication: Product used for unknown indication
     Route: 065
     Dates: start: 20220607
  25. Ovestinon [Concomitant]
     Indication: Product used for unknown indication
     Route: 065
     Dates: start: 20220530
  26. PANTOPRAZOLE SODIUM [Concomitant]
     Active Substance: PANTOPRAZOLE SODIUM
     Indication: Product used for unknown indication
     Route: 065
     Dates: start: 20220530
  27. ACETAMINOPHEN [Concomitant]
     Active Substance: ACETAMINOPHEN
     Indication: Product used for unknown indication
     Route: 065
     Dates: start: 20220602
  28. Paspertin [Concomitant]
     Indication: Product used for unknown indication
     Route: 065
     Dates: start: 20220607
  29. Passedan [Concomitant]
     Indication: Product used for unknown indication
     Route: 065
     Dates: start: 20220530
  30. DEXIBUPROFEN [Concomitant]
     Active Substance: DEXIBUPROFEN
     Indication: Product used for unknown indication
     Route: 065
     Dates: start: 20220530
  31. ASPIRIN [Concomitant]
     Active Substance: ASPIRIN
     Indication: Product used for unknown indication
     Route: 065
     Dates: start: 20220601
  32. TRAZODONE HYDROCHLORIDE [Concomitant]
     Active Substance: TRAZODONE HYDROCHLORIDE
     Indication: Product used for unknown indication
     Route: 065
     Dates: start: 20220817
  33. VALACYCLOVIR HYDROCHLORIDE [Concomitant]
     Active Substance: VALACYCLOVIR HYDROCHLORIDE
     Indication: Product used for unknown indication
     Route: 065
     Dates: start: 20250531
  34. ZYPREXA [Concomitant]
     Active Substance: OLANZAPINE
     Indication: Product used for unknown indication
     Route: 065
     Dates: start: 20220603

REACTIONS (3)
  - Neutropenia [Recovered/Resolved]
  - Infection [Recovered/Resolved]
  - Product use issue [Unknown]

NARRATIVE: CASE EVENT DATE: 20220817
